FAERS Safety Report 23525017 (Version 10)
Quarter: 2025Q1

REPORT INFORMATION
  Report Type: Spontaneous
  Country: US (occurrence: US)
  Receive Date: 20240215
  Receipt Date: 20250226
  Transmission Date: 20250408
  Serious: Yes (Hospitalization, Other)
  Sender: SANOFI AVENTIS
  Company Number: US-SA-SAC20240209001266

PATIENT
  Age: 78 Year
  Sex: Female

DRUGS (3)
  1. DUPIXENT [Suspect]
     Active Substance: DUPILUMAB
     Indication: Neurodermatitis
     Route: 058
     Dates: start: 20231228, end: 20231228
  2. DUPIXENT [Suspect]
     Active Substance: DUPILUMAB
     Dosage: 300 MG, QOW
     Route: 058
     Dates: start: 20240111, end: 20240905
  3. DUPIXENT [Suspect]
     Active Substance: DUPILUMAB
     Dosage: 300 MG, QOW
     Route: 058
     Dates: start: 20240912

REACTIONS (20)
  - Cardiac failure congestive [Unknown]
  - Pulmonary oedema [Unknown]
  - Eye haemorrhage [Recovered/Resolved]
  - Gastrooesophageal reflux disease [Unknown]
  - Dysphonia [Unknown]
  - Retching [Unknown]
  - Dyspnoea [Unknown]
  - Mass [Unknown]
  - Oedema peripheral [Unknown]
  - Fatigue [Unknown]
  - Rash erythematous [Unknown]
  - Dizziness [Unknown]
  - Rash pruritic [Recovered/Resolved]
  - Vision blurred [Unknown]
  - Injection site bruising [Unknown]
  - Neurodermatitis [Recovered/Resolved]
  - Urticaria [Recovered/Resolved]
  - Pruritus [Recovered/Resolved]
  - Dry eye [Unknown]
  - Inappropriate schedule of product administration [Not Recovered/Not Resolved]

NARRATIVE: CASE EVENT DATE: 20240101
